FAERS Safety Report 6137700-1 (Version None)
Quarter: 2009Q1

REPORT INFORMATION
  Report Type: 
  Country: None (occurrence: None)
  Receive Date: 20090326
  Receipt Date: 20090313
  Transmission Date: 20090719
  Serious: Yes (Hospitalization)
  Sender: FDA-Public Use
  Company Number: 2009000788

PATIENT
  Age: 70 Year
  Sex: Male

DRUGS (4)
  1. ERLOTINIB (ERLOTINIB) (TABLET) (ERLOTINIB) [Suspect]
     Indication: NON-SMALL CELL LUNG CANCER
     Dosage: (150 MG, QD), ORAL
     Route: 048
     Dates: start: 20090112, end: 20090226
  2. CP-751, 871 [Suspect]
  3. MORPHINE SULFATE INJ [Concomitant]
  4. KETOPROFEN [Concomitant]

REACTIONS (2)
  - ANAEMIA [None]
  - DISEASE PROGRESSION [None]
